FAERS Safety Report 13178570 (Version 1)
Quarter: 2017Q1

REPORT INFORMATION
  Report Type: Spontaneous
  Country: US (occurrence: US)
  Receive Date: 20170201
  Receipt Date: 20170201
  Transmission Date: 20170428
  Serious: Yes (Disabling, Other)
  Sender: FDA-Public Use
  Company Number: None

PATIENT
  Age: 65 Year
  Sex: Female

DRUGS (2)
  1. TIZANIDINE 2 MG AND 4 MG CARACO [Suspect]
     Active Substance: TIZANIDINE
     Indication: NEUROSARCOIDOSIS
     Dosage: ?          QUANTITY:90 TABLET(S);?
     Route: 048
     Dates: start: 20160901, end: 20170201
  2. TIZANIDINE 2 MG AND 4 MG CARACO [Suspect]
     Active Substance: TIZANIDINE
     Indication: MUSCLE SPASMS
     Dosage: ?          QUANTITY:90 TABLET(S);?
     Route: 048
     Dates: start: 20160901, end: 20170201

REACTIONS (6)
  - Product substitution issue [None]
  - Spinal disorder [None]
  - Drug ineffective [None]
  - Condition aggravated [None]
  - Muscle spasms [None]
  - Movement disorder [None]

NARRATIVE: CASE EVENT DATE: 20170201
